FAERS Safety Report 4642396-1 (Version None)
Quarter: 2005Q2

REPORT INFORMATION
  Report Type: 
  Country: None (occurrence: None)
  Receive Date: 20050421
  Receipt Date: 20050421
  Transmission Date: 20051028
  Serious: No
  Sender: FDA-Public Use
  Company Number: None

PATIENT
  Age: 81 Year
  Sex: Female
  Weight: 116 kg

DRUGS (1)
  1. FLEET PHOSPHO SODA [Suspect]
     Dosage: 45 ML   X 2 DOSES   ORAL
     Route: 048
     Dates: start: 20050417, end: 20050418

REACTIONS (6)
  - ASTHENIA [None]
  - DIZZINESS [None]
  - FALL [None]
  - HYPERKALAEMIA [None]
  - HYPERPHOSPHATAEMIA [None]
  - RENAL IMPAIRMENT [None]
